FAERS Safety Report 7615708-4 (Version None)
Quarter: 2011Q2

REPORT INFORMATION
  Report Type: 
  Country: None (occurrence: None)
  Receive Date: 20110515
  Receipt Date: 20110515
  Transmission Date: 20111010
  Serious: No
  Sender: FDA-Public Use
  Company Number: None

PATIENT
  Sex: Female
  Weight: 63.5036 kg

DRUGS (2)
  1. DEPO-PROVERA [Suspect]
     Indication: CONTRACEPTION
     Dosage: 150 MG 3 MONTHS
     Dates: start: 19990102, end: 20070102
  2. DEPO-PROVERA [Suspect]
     Indication: CONTRACEPTION
     Dosage: 150 MG 3 MONTHS
     Dates: start: 20080102, end: 20110714

REACTIONS (6)
  - MIGRAINE [None]
  - BONE LOSS [None]
  - ACNE [None]
  - TOOTH LOSS [None]
  - DENTAL CARIES [None]
  - ARTHRALGIA [None]
